FAERS Safety Report 11854300 (Version 1)
Quarter: 2015Q4

REPORT INFORMATION
  Report Type: Spontaneous
  Country: US (occurrence: US)
  Receive Date: 20151221
  Receipt Date: 20151221
  Transmission Date: 20160305
  Serious: No
  Sender: FDA-Public Use
  Company Number: US-PAR PHARMACEUTICAL, INC-2014SCPR009492

PATIENT

DRUGS (1)
  1. APLISOL [Suspect]
     Active Substance: TUBERCULIN PURIFIED PROTEIN DERIVATIVE
     Indication: TUBERCULIN TEST
     Dosage: 0.1 ML, SINGLE
     Route: 023
     Dates: start: 20141031, end: 20141031

REACTIONS (3)
  - Injection site erythema [Recovered/Resolved]
  - Product quality issue [Unknown]
  - Pain in extremity [Recovered/Resolved]

NARRATIVE: CASE EVENT DATE: 20141101
